FAERS Safety Report 5725280-1 (Version None)
Quarter: 2008Q2

REPORT INFORMATION
  Report Type: 
  Country: None (occurrence: None)
  Receive Date: 20080429
  Receipt Date: 20080422
  Transmission Date: 20081010
  Serious: Yes (Other)
  Sender: FDA-Public Use
  Company Number: CHPA2008US07065

PATIENT
  Age: 33 Year
  Sex: Male

DRUGS (2)
  1. EX-LAX MAX STR LAX PILLS SENNA (NCH) (SENNA GLYCOSIDES (CA SALTS OF PU [Suspect]
     Indication: CONSTIPATION
     Dosage: 50 MG, BID, ORAL
     Route: 048
     Dates: start: 20080417
  2. DRUG THERAPY NOS (DRUG THERAPY NOS) [Suspect]
     Indication: BACK PAIN
     Dosage: 7.5 MG, ORAL
     Route: 048
     Dates: start: 20080412, end: 20080417

REACTIONS (1)
  - HAEMATOCHEZIA [None]
